FAERS Safety Report 8775286 (Version 1)
Quarter: 2012Q4

REPORT INFORMATION
  Report Type: 
  Country: GB (occurrence: GB)
  Receive Date: 20120909
  Receipt Date: 20120909
  Transmission Date: 20130627
  Serious: Yes (Other)
  Sender: FDA-Public Use
  Company Number: GB-009507513-1202USA04091

PATIENT

DRUGS (3)
  1. DEXAMETHASONE TABLETS BP  2.0MG [Suspect]
     Indication: B PRECURSOR TYPE ACUTE LEUKAEMIA
     Dosage: 6 mg/m2, qd
     Route: 048
  2. VINCRISTINE SULFATE [Concomitant]
     Indication: B PRECURSOR TYPE ACUTE LEUKAEMIA
     Dosage: 1.5 mg/m2, QW
     Route: 042
  3. ASPARAGINASE (AS DRUG) [Suspect]
     Indication: B PRECURSOR TYPE ACUTE LEUKAEMIA

REACTIONS (4)
  - Hypertriglyceridaemia [Unknown]
  - Lethargy [Unknown]
  - Neuropathy peripheral [Unknown]
  - Hyponatraemia [Unknown]
